FAERS Safety Report 6956260-6 (Version None)
Quarter: 2010Q3

REPORT INFORMATION
  Report Type: 
  Country: None (occurrence: None)
  Receive Date: 20100826
  Receipt Date: 20100811
  Transmission Date: 20110219
  Serious: Yes (Other)
  Sender: FDA-Public Use
  Company Number: 2010-2736

PATIENT
  Age: 52 Year
  Sex: Female

DRUGS (4)
  1. BOTULINUM TOXIN TYPE A [Suspect]
     Indication: OFF LABEL USE
     Dosage: 70 UNITS (70 UNITS,SINGLE CYCLE),INTRAMUSCULAR
     Route: 030
     Dates: start: 20100708, end: 20100708
  2. BOTULINUM TOXIN TYPE A [Suspect]
     Indication: SKIN WRINKLING
     Dosage: 70 UNITS (70 UNITS,SINGLE CYCLE),INTRAMUSCULAR
     Route: 030
     Dates: start: 20100708, end: 20100708
  3. RESTYLANE (HYALURONIC ACID) [Concomitant]
  4. UNSPECIFIED CREAM CONTAINING RETINOL (RETINOL) [Concomitant]

REACTIONS (4)
  - CELLULITIS ORBITAL [None]
  - HYPERSENSITIVITY [None]
  - OFF LABEL USE [None]
  - WRONG TECHNIQUE IN DRUG USAGE PROCESS [None]
